FAERS Safety Report 24835963 (Version 2)
Quarter: 2025Q4

REPORT INFORMATION
  Report Type: Spontaneous
  Country: US (occurrence: US)
  Receive Date: 20250113
  Receipt Date: 20251022
  Transmission Date: 20260117
  Serious: Yes (Hospitalization, Other)
  Sender: SANDOZ
  Company Number: US-002147023-NVSC2023US270773

PATIENT
  Age: 2 Year
  Sex: Female
  Weight: 9.88 kg

DRUGS (4)
  1. AMOXICILLIN [Suspect]
     Active Substance: AMOXICILLIN
     Indication: Product used for unknown indication
     Dosage: UNK
     Route: 065
  2. ONASEMNOGENE ABEPARVOVEC [Suspect]
     Active Substance: ONASEMNOGENE ABEPARVOVEC
     Indication: Spinal muscular atrophy
     Dosage: 24.8 ML, ONCE/SINGLE
     Route: 042
     Dates: start: 20190703, end: 20190703
  3. PREDNISOLONE [Concomitant]
     Active Substance: PREDNISOLONE
     Indication: Product used for unknown indication
     Dosage: 4.5 MG
     Route: 065
     Dates: start: 20190702, end: 20190927
  4. RISDIPLAM [Concomitant]
     Active Substance: RISDIPLAM
     Indication: Product used for unknown indication
     Dosage: 4.3 ML
     Route: 048
     Dates: start: 20230210

REACTIONS (6)
  - Hypoxia [Recovered/Resolved]
  - Respiratory syncytial virus infection [Recovered/Resolved]
  - Bronchiolitis [Recovered/Resolved]
  - Cough [Recovered/Resolved]
  - Pulmonary congestion [Recovered/Resolved]
  - Chronic respiratory failure [Recovered/Resolved with Sequelae]

NARRATIVE: CASE EVENT DATE: 20211025
